FAERS Safety Report 7152356-7 (Version None)
Quarter: 2010Q4

REPORT INFORMATION
  Report Type: 
  Country: None (occurrence: None)
  Receive Date: 20101123
  Receipt Date: 20101109
  Transmission Date: 20110411
  Serious: Yes (Hospitalization)
  Sender: FDA-Public Use
  Company Number: 2010-3946

PATIENT
  Age: 71 Year
  Sex: Male

DRUGS (1)
  1. APO-GO PFS (APO-GO) (APOMORPHINE HYDROCHLORIDE) (APOMORPHINE HYDROCHLO [Suspect]
     Indication: PRODUCT USED FOR UNKNOWN INDICATION
     Dosage: (CONTINUOUS FROM 7AM TO 11PM), SUBCUTANEOUS
     Route: 058
     Dates: start: 20091125

REACTIONS (3)
  - FLUID RETENTION [None]
  - HAEMOLYSIS [None]
  - YELLOW SKIN [None]
